FAERS Safety Report 8168048-1 (Version None)
Quarter: 2012Q1

REPORT INFORMATION
  Report Type: 
  Country: None (occurrence: None)
  Receive Date: 20120227
  Receipt Date: 20120217
  Transmission Date: 20120608
  Serious: Yes (Other)
  Sender: FDA-Public Use
  Company Number: PHHY2011JP82725

PATIENT
  Sex: Male

DRUGS (8)
  1. OLMESARTAN MEDOXOMIL [Suspect]
     Indication: HYPERTENSION
     Dosage: 20 MG,
     Route: 048
  2. SIGMART [Concomitant]
     Dosage: 15 MG,
     Route: 048
  3. TICLOPIDINE HYDROCHLORIDE [Concomitant]
     Dosage: 200 MG,
     Route: 048
  4. ALISKIREN [Suspect]
     Indication: HYPERTENSION
     Dosage: 150 MG,
     Route: 048
     Dates: start: 20101015
  5. ETIZOLAM [Concomitant]
     Dosage: 0.5 MG,
     Route: 048
  6. MAGNESIUM OXIDE [Concomitant]
     Dosage: 660 MG,
     Route: 048
     Dates: start: 20110808
  7. CRESTOR [Concomitant]
     Dosage: 2.5 MG,
     Route: 048
  8. ASPIRIN [Concomitant]
     Dosage: 100 MG,
     Route: 048

REACTIONS (6)
  - HYPERKALAEMIA [None]
  - BLOOD CREATININE INCREASED [None]
  - HAEMOGLOBIN DECREASED [None]
  - BLOOD URIC ACID INCREASED [None]
  - GASTRIC CANCER [None]
  - HAEMATOCRIT DECREASED [None]
